FAERS Safety Report 9707313 (Version 1)
Quarter: 2013Q4

REPORT INFORMATION
  Report Type: Spontaneous
  Country: US (occurrence: US)
  Receive Date: 20131125
  Receipt Date: 20131125
  Transmission Date: 20140711
  Serious: No
  Sender: FDA-Public Use
  Company Number: US-GLAXOSMITHKLINE-A1006465A

PATIENT
  Age: 80 Year
  Sex: Female

DRUGS (5)
  1. FLOVENT [Suspect]
     Indication: CHRONIC OBSTRUCTIVE PULMONARY DISEASE
     Dosage: 1PUFF PER DAY
     Route: 055
     Dates: start: 201210
  2. THYROID MEDICATION [Concomitant]
  3. PRILOSEC [Concomitant]
  4. UNKNOWN DRUG FOR ANXIETY [Concomitant]
  5. VENTOLIN [Concomitant]

REACTIONS (1)
  - Wheezing [Recovered/Resolved]
